FAERS Safety Report 14917372 (Version 1)
Quarter: 2018Q2

REPORT INFORMATION
  Report Type: Other
  Country: AR (occurrence: AR)
  Receive Date: 20180521
  Receipt Date: 20180521
  Transmission Date: 20180711
  Serious: Yes (Other)
  Sender: FDA-Public Use
  Company Number: AR-DEXPHARM-20180336

PATIENT
  Age: 67 Year
  Sex: Male

DRUGS (4)
  1. LEVOTHYROXINE. [Suspect]
     Active Substance: LEVOTHYROXINE
     Indication: HYPOTHYROIDISM
  2. MELOXICAM. [Suspect]
     Active Substance: MELOXICAM
  3. OMEPRAZOLE. [Suspect]
     Active Substance: OMEPRAZOLE
  4. METFORMIN [Concomitant]
     Active Substance: METFORMIN HYDROCHLORIDE
     Indication: DIABETES MELLITUS

REACTIONS (1)
  - Fixed eruption [Recovered/Resolved]
